FAERS Safety Report 6554040-7 (Version None)
Quarter: 2010Q1

REPORT INFORMATION
  Report Type: 
  Country: None (occurrence: None)
  Receive Date: 20100127
  Receipt Date: 20100118
  Transmission Date: 20100710
  Serious: Yes (Other)
  Sender: FDA-Public Use
  Company Number: JP-PFIZER INC-2010006631

PATIENT
  Age: 15 Month
  Sex: Male

DRUGS (4)
  1. ZITHROMAX [Suspect]
     Dosage: UNK
     Route: 048
     Dates: start: 20100112, end: 20100114
  2. ASVERIN [Concomitant]
     Route: 048
  3. BISOLVON [Concomitant]
  4. MIYARI BACTERIA [Concomitant]
     Route: 048

REACTIONS (1)
  - BODY TEMPERATURE DECREASED [None]
